FAERS Safety Report 21755502 (Version 1)
Quarter: 2022Q4

REPORT INFORMATION
  Report Type: Report from Study
  Country: US (occurrence: US)
  Receive Date: 20221220
  Receipt Date: 20221220
  Transmission Date: 20230113
  Serious: Yes (Hospitalization)
  Sender: FDA-Public Use
  Company Number: US-TAKEDA-2014BAX025659

PATIENT
  Sex: Female

DRUGS (1)
  1. HUMAN IMMUNOGLOBULIN G [Suspect]
     Active Substance: HUMAN IMMUNOGLOBULIN G
     Indication: Immunodeficiency common variable
     Dosage: UNK
     Route: 042
     Dates: start: 201203

REACTIONS (9)
  - Hospitalisation [Unknown]
  - Illness [Not Recovered/Not Resolved]
  - Pruritus [Unknown]
  - Hot flush [Unknown]
  - Blood pressure increased [Unknown]
  - Headache [Unknown]
  - Anxiety [Unknown]
  - Arthralgia [Unknown]
  - Retching [Unknown]
